FAERS Safety Report 16709809 (Version 1)
Quarter: 2019Q3

REPORT INFORMATION
  Report Type: Spontaneous
  Country: US (occurrence: US)
  Receive Date: 20190816
  Receipt Date: 20190816
  Transmission Date: 20191004
  Serious: No
  Sender: FDA-Public Use
  Company Number: US-JIANGSU HENGRUI MEDICINE CO., LTD.-2073239

PATIENT
  Age: 82 Year
  Sex: Male

DRUGS (7)
  1. ETOPOSIDE. [Suspect]
     Active Substance: ETOPOSIDE
  2. VINCRISTINE [Suspect]
     Active Substance: VINCRISTINE
  3. CYCLOPHOSPHAMIDE FOR INJECTION USP, 500 MG, 1 G AND 2 G PER SINGLE-DOS [Suspect]
     Active Substance: CYCLOPHOSPHAMIDE
     Indication: DIFFUSE LARGE B-CELL LYMPHOMA
     Route: 065
  4. RITUXIMAB. [Suspect]
     Active Substance: RITUXIMAB
  5. METHOTREXATE. [Suspect]
     Active Substance: METHOTREXATE
  6. DOXORUBICIN [Suspect]
     Active Substance: DOXORUBICIN
  7. PREDNISONE. [Suspect]
     Active Substance: PREDNISONE

REACTIONS (1)
  - Diffuse large B-cell lymphoma recurrent [Unknown]
